FAERS Safety Report 20576700 (Version 1)
Quarter: 2022Q1

REPORT INFORMATION
  Report Type: Spontaneous
  Country: US (occurrence: US)
  Receive Date: 20220310
  Receipt Date: 20220310
  Transmission Date: 20220423
  Serious: No
  Sender: FDA-Public Use
  Company Number: US-TERSERA THERAPEUTICS LLC-2022TRS000201

PATIENT

DRUGS (3)
  1. XERMELO [Suspect]
     Active Substance: TELOTRISTAT ETHYL
     Indication: Neuroendocrine tumour
     Dosage: 250 MG, TID
     Route: 048
     Dates: start: 20211216
  2. XERMELO [Suspect]
     Active Substance: TELOTRISTAT ETHYL
     Indication: Carcinoid syndrome
     Dosage: 250 MG, QD (ONLY TAKING ONCE DAILY DURING HER WEEKS OF TREATMENT (2 WEEKS A MONTH))
     Route: 048
  3. XERMELO [Suspect]
     Active Substance: TELOTRISTAT ETHYL
     Indication: Neuroendocrine carcinoma

REACTIONS (6)
  - Adverse drug reaction [Unknown]
  - Poor quality sleep [Not Recovered/Not Resolved]
  - Chest discomfort [Unknown]
  - Diarrhoea [Recovered/Resolved]
  - Treatment noncompliance [Not Recovered/Not Resolved]
  - Abdominal discomfort [Unknown]

NARRATIVE: CASE EVENT DATE: 20220202
